FAERS Safety Report 10270006 (Version 1)
Quarter: 2014Q2

REPORT INFORMATION
  Report Type: Spontaneous
  Country: KR (occurrence: None)
  Receive Date: 20140625
  Receipt Date: 20140625
  Transmission Date: 20141212
  Serious: Yes (Hospitalization)
  Sender: FDA-Public Use
  Company Number: FK201402417

PATIENT
  Age: 59 Year
  Sex: Male

DRUGS (3)
  1. FLUOROURACIL [Suspect]
     Indication: COLON CANCER METASTATIC
  2. LEUCOVORIN CALCIUM [Suspect]
     Indication: COLON CANCER METASTATIC
  3. OXALIPLATIN [Suspect]
     Indication: COLON CANCER METASTATIC

REACTIONS (5)
  - Tumour lysis syndrome [None]
  - Febrile neutropenia [None]
  - Septic shock [None]
  - Colon cancer metastatic [None]
  - Malignant neoplasm progression [None]
